FAERS Safety Report 10311000 (Version 1)
Quarter: 2014Q3

REPORT INFORMATION
  Report Type: Spontaneous
  Country: DK (occurrence: None)
  Receive Date: 20140714
  Receipt Date: 20140714
  Transmission Date: 20150326
  Serious: Yes (Hospitalization)
  Sender: FDA-Public Use
  Company Number: 2014188763

PATIENT
  Age: 19 Year
  Sex: Male

DRUGS (3)
  1. FRAGMIN [Suspect]
     Active Substance: DALTEPARIN SODIUM
     Indication: PULMONARY EMBOLISM
     Dosage: 12.500 IE DAILY, STRENGTH: 12.500 ANTI-XA IE/ML, SUBCUTANEOUS?
     Route: 058
     Dates: start: 20140424, end: 20140501
  2. PINEX (PARACETAMOL) [Concomitant]
  3. IBUPROFEN ^ORIFARM^ [Concomitant]

REACTIONS (4)
  - Liver disorder [None]
  - Alanine aminotransferase increased [None]
  - Blood alkaline phosphatase increased [None]
  - Aspartate aminotransferase increased [None]

NARRATIVE: CASE EVENT DATE: 20140426
